FAERS Safety Report 9018106 (Version 1)
Quarter: 2013Q1

REPORT INFORMATION
  Report Type: Spontaneous
  Country: IT (occurrence: IT)
  Receive Date: 20130117
  Receipt Date: 20130117
  Transmission Date: 20140127
  Serious: Yes (Death, Other)
  Sender: FDA-Public Use
  Company Number: IT-CELGENEUS-083-20785-13011818

PATIENT
  Age: 77 Year
  Sex: Male

DRUGS (2)
  1. THALIDOMIDE CELGENE [Suspect]
     Indication: PLASMA CELL MYELOMA
     Dosage: 50 MILLIGRAM
     Route: 048
     Dates: start: 20120706
  2. THALIDOMIDE CELGENE [Suspect]
     Dosage: 25 MILLIGRAM
     Route: 048
     Dates: start: 20121130, end: 20121227

REACTIONS (2)
  - Respiratory failure [Fatal]
  - Femur fracture [Unknown]
